FAERS Safety Report 8434836-7 (Version None)
Quarter: 2012Q2

REPORT INFORMATION
  Report Type: 
  Country: None (occurrence: None)
  Receive Date: 20120614
  Receipt Date: 20120605
  Transmission Date: 20120825
  Serious: Yes (Other)
  Sender: FDA-Public Use
  Company Number: US-JNJFOC-20120603028

PATIENT
  Sex: Male
  Weight: 90.72 kg

DRUGS (6)
  1. EFFEXOR XR [Concomitant]
     Indication: DEPRESSION
     Route: 065
     Dates: start: 20100201
  2. BENADRYL [Suspect]
     Indication: LIP SWELLING
     Route: 065
     Dates: start: 20100401
  3. AN UNKNOWN MEDICATION [Concomitant]
     Route: 065
     Dates: start: 20120401
  4. MULTI-VITAMINS [Concomitant]
     Indication: MIGRAINE
     Route: 065
  5. BENADRYL [Suspect]
     Indication: PARAESTHESIA ORAL
     Route: 065
     Dates: start: 20100401
  6. NAPROXEN [Concomitant]
     Indication: MIGRAINE
     Route: 065
     Dates: start: 20120401

REACTIONS (5)
  - FATIGUE [None]
  - CONDITION AGGRAVATED [None]
  - OFF LABEL USE [None]
  - SWELLING FACE [None]
  - OROPHARYNGEAL SWELLING [None]
